FAERS Safety Report 16680796 (Version 2)
Quarter: 2025Q3

REPORT INFORMATION
  Report Type: Spontaneous
  Country: EU (occurrence: EU)
  Receive Date: 20190808
  Receipt Date: 20250714
  Transmission Date: 20251021
  Serious: Yes (Death, Other)
  Sender: AUROBINDO
  Company Number: EU-AUROBINDO-AUR-APL-2019-052551

PATIENT
  Age: 14 Year
  Sex: Female

DRUGS (6)
  1. VALPROATE SODIUM [Interacting]
     Active Substance: VALPROATE SODIUM
     Indication: Juvenile myoclonic epilepsy
     Route: 048
  2. LAMOTRIGINE [Interacting]
     Active Substance: LAMOTRIGINE
     Indication: Juvenile myoclonic epilepsy
     Route: 048
  3. MIDAZOLAM [Suspect]
     Active Substance: MIDAZOLAM
     Indication: Seizure
     Route: 045
  4. MIDAZOLAM [Suspect]
     Active Substance: MIDAZOLAM
     Indication: Product used for unknown indication
     Route: 065
  5. TRAMADOL [Interacting]
     Active Substance: TRAMADOL
     Indication: Product used for unknown indication
     Route: 048
  6. CANNABIS SATIVA SUBSP. INDICA TOP [Interacting]
     Active Substance: CANNABIS SATIVA SUBSP. INDICA TOP
     Indication: Product used for unknown indication
     Route: 065

REACTIONS (17)
  - Drug abuse [Fatal]
  - Epilepsy [Fatal]
  - Toxicity to various agents [Fatal]
  - Atelectasis [Fatal]
  - Respiratory acidosis [Fatal]
  - Cerebral ischaemia [Fatal]
  - Unresponsive to stimuli [Fatal]
  - Bradycardia [Fatal]
  - Metabolic acidosis [Fatal]
  - Brain stem syndrome [Fatal]
  - Cardiovascular insufficiency [Fatal]
  - Apnoea [Fatal]
  - Brain oedema [Fatal]
  - Lung infiltration [Fatal]
  - Drug interaction [Fatal]
  - Prescription drug used without a prescription [Fatal]
  - Overdose [Fatal]
